FAERS Safety Report 6907696-0 (Version None)
Quarter: 2010Q3

REPORT INFORMATION
  Report Type: 
  Country: None (occurrence: None)
  Receive Date: 20100805
  Receipt Date: 20100728
  Transmission Date: 20110219
  Serious: Yes (Hospitalization)
  Sender: FDA-Public Use
  Company Number: DE-WYE-H16006110

PATIENT
  Sex: Male
  Weight: 72.5 kg

DRUGS (4)
  1. TEMSIROLIMUS [Suspect]
     Indication: GLIOBLASTOMA
     Route: 042
     Dates: start: 20100305, end: 20100616
  2. TEMSIROLIMUS [Suspect]
     Route: 042
     Dates: start: 20100101
  3. TAVEGIL [Concomitant]
     Dosage: ^AS PER PROTOCOL^
  4. IBUPROFEN [Concomitant]
     Indication: HEADACHE
     Dosage: 600 MG AS NEEDED

REACTIONS (3)
  - DIZZINESS [None]
  - NAUSEA [None]
  - VOMITING [None]
